FAERS Safety Report 4309087-8 (Version None)
Quarter: 2004Q1

REPORT INFORMATION
  Report Type: 
  Country: None (occurrence: None)
  Receive Date: 20040302
  Receipt Date: 20031223
  Transmission Date: 20041129
  Serious: Yes (Hospitalization, Other)
  Sender: FDA-Public Use
  Company Number: US-GLAXOSMITHKLINE-A0444133A

PATIENT
  Age: 69 Year
  Sex: Female

DRUGS (12)
  1. AVANDIA [Suspect]
     Indication: DIABETES MELLITUS NON-INSULIN-DEPENDENT
     Dosage: 4MG PER DAY
     Route: 048
     Dates: start: 20020201, end: 20020901
  2. FOLIC ACID [Concomitant]
     Dosage: 1MG PER DAY
     Route: 048
     Dates: start: 20010101
  3. NPH INSULIN [Concomitant]
     Indication: DIABETES MELLITUS NON-INSULIN-DEPENDENT
     Route: 058
     Dates: start: 20021001
  4. REGULAR INSULIN [Concomitant]
     Indication: DIABETES MELLITUS NON-INSULIN-DEPENDENT
     Route: 058
     Dates: start: 20021001
  5. COZAAR [Concomitant]
     Indication: HYPERTENSION
     Dosage: 100MG PER DAY
     Route: 048
  6. GLUCOPHAGE [Concomitant]
     Indication: DIABETES MELLITUS NON-INSULIN-DEPENDENT
     Dosage: 500MG TWICE PER DAY
     Route: 048
     Dates: start: 20000801, end: 20020901
  7. GLIPIZIDE [Concomitant]
     Indication: DIABETES MELLITUS NON-INSULIN-DEPENDENT
     Dosage: 10MG THREE TIMES PER DAY
     Route: 048
     Dates: start: 20000801
  8. MACROBID [Concomitant]
     Indication: INFECTION
     Dosage: 100MG TWICE PER DAY
     Route: 048
     Dates: start: 20020801, end: 20020801
  9. ZYRTEC [Concomitant]
     Indication: HYPERSENSITIVITY
     Dosage: 10MG PER DAY
     Route: 048
     Dates: start: 20020501, end: 20020601
  10. ALTACE [Concomitant]
     Indication: HYPERTENSION
     Dosage: 5MG PER DAY
     Route: 048
     Dates: start: 20020501
  11. PHENERGAN W/ CODEINE [Concomitant]
     Indication: NASOPHARYNGITIS
     Dosage: 1TSP PER DAY
     Route: 048
     Dates: start: 20000301, end: 20020301
  12. AMOXICILLIN [Concomitant]
     Indication: INFECTION
     Dosage: 500MG THREE TIMES PER DAY
     Route: 048

REACTIONS (1)
  - HEPATIC FAILURE [None]
